FAERS Safety Report 6746303-7 (Version None)
Quarter: 2010Q2

REPORT INFORMATION
  Report Type: 
  Country: None (occurrence: None)
  Receive Date: 20100526
  Receipt Date: 20100519
  Transmission Date: 20101027
  Serious: Yes (Other)
  Sender: FDA-Public Use
  Company Number: URSO-2010-060

PATIENT
  Age: 84 Year
  Sex: Male

DRUGS (4)
  1. URSODIOL [Suspect]
     Indication: CHOLELITHIASIS
     Dosage: 300 MG  ORAL
     Route: 048
     Dates: start: 20100403, end: 20100507
  2. OMEPRAZOLE [Suspect]
     Indication: REFLUX OESOPHAGITIS
     Dosage: 20 MG  ORAL
     Route: 048
     Dates: start: 20100403, end: 20100507
  3. ACETAMINOPHEN [Suspect]
     Indication: GINGIVITIS
     Dosage: 300 MG, ORAL
     Route: 048
     Dates: start: 20100325, end: 20100507
  4. FLOMOX (CEFCAPENE PIVOXIL HYDROCHLORIDE) [Suspect]
     Indication: GINGIVITIS
     Dosage: 300 MG, ORAL
     Route: 048
     Dates: start: 20100325, end: 20100507

REACTIONS (1)
  - RENAL DISORDER [None]
